FAERS Safety Report 9741479 (Version 1)
Quarter: 2013Q4

REPORT INFORMATION
  Report Type: Spontaneous
  Country: US (occurrence: US)
  Receive Date: 20131209
  Receipt Date: 20131209
  Transmission Date: 20140711
  Serious: No
  Sender: FDA-Public Use
  Company Number: US-TEVA-448470USA

PATIENT
  Age: 65 Year
  Sex: Female
  Weight: 76.27 kg

DRUGS (3)
  1. QVAR [Suspect]
     Indication: ASTHMA
     Dosage: 2 PUFFS
     Dates: start: 201309
  2. PREDNISONE [Concomitant]
     Indication: SINUS DISORDER
  3. PULMICORT RESPULES [Concomitant]
     Indication: ASTHMA

REACTIONS (2)
  - Headache [Not Recovered/Not Resolved]
  - Sinus disorder [Not Recovered/Not Resolved]
